FAERS Safety Report 6967403-2 (Version None)
Quarter: 2010Q3

REPORT INFORMATION
  Report Type: 
  Country: None (occurrence: None)
  Receive Date: 20100823
  Receipt Date: 20100617
  Transmission Date: 20110219
  Serious: No
  Sender: FDA-Public Use
  Company Number: 011213

PATIENT
  Sex: Female

DRUGS (1)
  1. CIMZIA [Suspect]
     Indication: CROHN'S DISEASE
     Dosage: (400 MG SUBCUTANEOUS)
     Route: 058
     Dates: start: 20090528

REACTIONS (7)
  - DYSPNOEA [None]
  - FLANK PAIN [None]
  - FUNGAL INFECTION [None]
  - INJECTION SITE REACTION [None]
  - KIDNEY INFECTION [None]
  - RENAL PAIN [None]
  - URINARY TRACT INFECTION [None]
